FAERS Safety Report 9266271 (Version 2)
Quarter: 2013Q3

REPORT INFORMATION
  Report Type: Spontaneous
  Country: US (occurrence: US)
  Receive Date: 20130502
  Receipt Date: 20130821
  Transmission Date: 20140515
  Serious: No
  Sender: FDA-Public Use
  Company Number: US-009507513-1304USA017315

PATIENT
  Sex: Female

DRUGS (3)
  1. PEG-INTRON [Suspect]
     Indication: HEPATITIS C
     Dosage: REDIPEN
     Dates: start: 20130206
  2. REBETOL [Suspect]
     Indication: HEPATITIS
     Dosage: UNK
     Route: 048
     Dates: start: 20130206
  3. VICTRELIS [Suspect]
     Indication: HEPATITIS C
     Dosage: UNK
     Route: 048
     Dates: start: 20130306

REACTIONS (12)
  - Coordination abnormal [Unknown]
  - Headache [Unknown]
  - Dizziness [Unknown]
  - Fatigue [Unknown]
  - Malaise [Unknown]
  - Rhinitis [Unknown]
  - Nausea [Unknown]
  - Chills [Unknown]
  - Decreased appetite [Unknown]
  - Hyperhidrosis [Unknown]
  - Pyrexia [Unknown]
  - Insomnia [Unknown]
